FAERS Safety Report 11076947 (Version 2)
Quarter: 2015Q2

REPORT INFORMATION
  Report Type: Spontaneous
  Country: US (occurrence: US)
  Receive Date: 20150429
  Receipt Date: 20150526
  Transmission Date: 20150821
  Serious: No
  Sender: FDA-Public Use
  Company Number: US-JNJFOC-20130804214

PATIENT
  Sex: Female
  Weight: 61.24 kg

DRUGS (3)
  1. IMODIUM A-D [Suspect]
     Active Substance: LOPERAMIDE HYDROCHLORIDE
     Indication: FLATULENCE
     Dosage: 2 CHEWS AND AGAIN 2 CHEWS IN 1 HOUR IF NEEDED
     Route: 048
  2. IMODIUM A-D [Suspect]
     Active Substance: LOPERAMIDE HYDROCHLORIDE
     Indication: ABDOMINAL DISTENSION
     Dosage: 2 CHEWS AND AGAIN 2 CHEWS IN 1 HOUR IF NEEDED
     Route: 048
  3. IMODIUM A-D [Suspect]
     Active Substance: LOPERAMIDE HYDROCHLORIDE
     Indication: DIARRHOEA
     Dosage: 2 CHEWS AND AGAIN 2 CHEWS IN 1 HOUR IF NEEDED
     Route: 048

REACTIONS (1)
  - Drug ineffective [Unknown]
